FAERS Safety Report 5153882-2 (Version None)
Quarter: 2006Q4

REPORT INFORMATION
  Report Type: 
  Country: None (occurrence: None)
  Receive Date: 20061120
  Receipt Date: 20061109
  Transmission Date: 20070319
  Serious: Yes (Hospitalization, Other)
  Sender: FDA-Public Use
  Company Number: GB-NOVOPROD-258561

PATIENT
  Age: 71 Year
  Sex: Male
  Weight: 84 kg

DRUGS (12)
  1. NOVOSEVEN [Suspect]
     Indication: HAEMORRHAGE
     Dosage: 7.2 MG, SINGLE
  2. PERINDOPRIL ERBUMINE [Concomitant]
     Indication: PREMEDICATION
  3. AMLODIPINE [Concomitant]
     Indication: PREMEDICATION
  4. ATENOLOL [Concomitant]
     Indication: PREMEDICATION
  5. SIMVASTATIN [Concomitant]
     Indication: PREMEDICATION
  6. CLOPIDOGREL [Concomitant]
  7. ASPIRIN [Concomitant]
  8. HEPARIN [Concomitant]
     Dosage: 300 IU/KG, QD
  9. APROTININ [Concomitant]
  10. SODIUM THIOPENTAL MITSUBISHI [Concomitant]
     Dosage: 2 G, QD
  11. DEXAMETHASONE TAB [Concomitant]
     Dosage: 20 MG, UNK
  12. PROTAMINE SULFATE [Concomitant]
     Dosage: 3 MG/KG, QD

REACTIONS (4)
  - CARDIAC ARREST [None]
  - CONDITION AGGRAVATED [None]
  - VENTRICULAR DYSFUNCTION [None]
  - VENTRICULAR TACHYCARDIA [None]
